FAERS Safety Report 12998253 (Version 1)
Quarter: 2016Q4

REPORT INFORMATION
  Report Type: Spontaneous
  Country: US (occurrence: US)
  Receive Date: 20161202
  Receipt Date: 20161202
  Transmission Date: 20170207
  Serious: Yes (Disabling, Other)
  Sender: FDA-Public Use
  Company Number: None

PATIENT
  Age: 3 Year
  Sex: Male
  Weight: 14.4 kg

DRUGS (3)
  1. MIRALAX [Suspect]
     Active Substance: POLYETHYLENE GLYCOL 3350
     Indication: CONSTIPATION
     Dosage: 1 CAPFUL DAILY ORAL
     Route: 048
     Dates: start: 20160201, end: 20161021
  2. DAILY VITAMIN [Concomitant]
     Active Substance: VITAMINS
  3. FIBER GUMMY [Concomitant]

REACTIONS (11)
  - Aggression [None]
  - Abnormal behaviour [None]
  - Poisoning [None]
  - Anger [None]
  - Middle insomnia [None]
  - Mood swings [None]
  - Therapy non-responder [None]
  - Communication disorder [None]
  - Insomnia [None]
  - Staring [None]
  - Mental disorder [None]

NARRATIVE: CASE EVENT DATE: 20161015
